FAERS Safety Report 13932828 (Version 1)
Quarter: 2017Q3

REPORT INFORMATION
  Report Type: Report from Study
  Country: US (occurrence: US)
  Receive Date: 20170904
  Receipt Date: 20170904
  Transmission Date: 20171127
  Serious: Yes (Hospitalization, Other)
  Sender: FDA-Public Use
  Company Number: US-ASTELLAS-2017US033007

PATIENT
  Sex: Female

DRUGS (15)
  1. CANNABIS SATIVA OIL [Concomitant]
     Active Substance: CANNABIS SATIVA SUBSP. INDICA TOP
     Indication: NEOPLASM MALIGNANT
     Dosage: UNK UNK, UNKNOWN FREQ.
     Route: 065
  2. METROGEL [Concomitant]
     Active Substance: METRONIDAZOLE
     Indication: PRODUCT USED FOR UNKNOWN INDICATION
     Dosage: UNK, UNKNOWN FREQ.
     Route: 065
  3. ASPIRIN. [Concomitant]
     Active Substance: ASPIRIN
     Indication: PRODUCT USED FOR UNKNOWN INDICATION
     Dosage: UNK, UNKNOWN FREQ.
     Route: 065
  4. VALTREX [Concomitant]
     Active Substance: VALACYCLOVIR HYDROCHLORIDE
     Indication: PRODUCT USED FOR UNKNOWN INDICATION
     Dosage: UNK, UNKNOWN FREQ.
     Route: 065
  5. ERLOTINIB [Suspect]
     Active Substance: ERLOTINIB
     Indication: METASTASES TO SPINE
     Dosage: UNK UNK, UNKNOWN FREQ.
     Route: 065
     Dates: start: 20151210
  6. ERLOTINIB [Suspect]
     Active Substance: ERLOTINIB
     Indication: METASTASES TO BONE
     Route: 048
     Dates: start: 20160213
  7. COMBIVENT [Concomitant]
     Active Substance: ALBUTEROL SULFATE\IPRATROPIUM BROMIDE
     Indication: PRODUCT USED FOR UNKNOWN INDICATION
     Dosage: 20MCG/100MCG, UNKNOWN FREQ.
     Route: 065
  8. REGLAN [Concomitant]
     Active Substance: METOCLOPRAMIDE HYDROCHLORIDE
     Indication: NAUSEA
     Route: 065
     Dates: start: 201511
  9. ZOMETA [Concomitant]
     Active Substance: ZOLEDRONIC ACID
     Indication: PRODUCT USED FOR UNKNOWN INDICATION
     Dosage: UNK, UNKNOWN FREQ.
     Route: 065
  10. ERLOTINIB [Suspect]
     Active Substance: ERLOTINIB
     Indication: METASTASES TO CENTRAL NERVOUS SYSTEM
     Dosage: UNK UNK, UNKNOWN FREQ.
     Route: 065
     Dates: start: 20151012
  11. DEXAMETHASONE. [Concomitant]
     Active Substance: DEXAMETHASONE
     Indication: PRODUCT USED FOR UNKNOWN INDICATION
     Dosage: UNK, UNKNOWN FREQ.
     Route: 065
  12. ERLOTINIB [Suspect]
     Active Substance: ERLOTINIB
     Route: 048
     Dates: start: 20170301
  13. CANNABIS SATIVA OIL [Concomitant]
     Active Substance: CANNABIS SATIVA SUBSP. INDICA TOP
     Indication: ANALGESIC THERAPY
  14. ERLOTINIB [Suspect]
     Active Substance: ERLOTINIB
     Route: 048
  15. ERLOTINIB [Suspect]
     Active Substance: ERLOTINIB
     Indication: LUNG CARCINOMA CELL TYPE UNSPECIFIED STAGE IV
     Route: 048
     Dates: end: 201510

REACTIONS (36)
  - Protein total decreased [Unknown]
  - Alopecia [Recovering/Resolving]
  - Visual impairment [Unknown]
  - Fatigue [Unknown]
  - Muscular weakness [Unknown]
  - Myalgia [Unknown]
  - Dysphonia [Unknown]
  - Alanine aminotransferase increased [Unknown]
  - Substance-induced psychotic disorder [Unknown]
  - Neutrophil count increased [Unknown]
  - Central nervous system lesion [Unknown]
  - Brain oedema [Unknown]
  - Sciatica [Unknown]
  - Blood urea increased [Unknown]
  - Lethargy [Unknown]
  - Herpes zoster [Unknown]
  - Nausea [Unknown]
  - Intentional product use issue [Unknown]
  - Headache [Unknown]
  - Asthenia [Unknown]
  - Meningioma [Unknown]
  - Vitamin D decreased [Unknown]
  - Back pain [Unknown]
  - Pain in extremity [Unknown]
  - Abdominal pain [Unknown]
  - Dyspnoea exertional [Unknown]
  - Rash [Not Recovered/Not Resolved]
  - Lymphocyte count decreased [Unknown]
  - Pain [Unknown]
  - Lymphadenopathy [Unknown]
  - Hepatic enzyme abnormal [Recovered/Resolved]
  - Arthralgia [Unknown]
  - Aspartate aminotransferase increased [Unknown]
  - Vomiting [Unknown]
  - Diarrhoea [Unknown]
  - Off label use [Unknown]
